FAERS Safety Report 6537319-4 (Version None)
Quarter: 2010Q1

REPORT INFORMATION
  Report Type: 
  Country: None (occurrence: None)
  Receive Date: 20100114
  Receipt Date: 20100112
  Transmission Date: 20100710
  Serious: Yes (Other)
  Sender: FDA-Public Use
  Company Number: AT-TEVA-220516USA

PATIENT
  Age: 33 Year
  Sex: Male

DRUGS (1)
  1. PIMOZIDE TABLETS [Suspect]

REACTIONS (1)
  - VENTRICULAR EXTRASYSTOLES [None]
